FAERS Safety Report 6371758-X (Version None)
Quarter: 2009Q3

REPORT INFORMATION
  Report Type: 
  Country: None (occurrence: None)
  Receive Date: 20090923
  Receipt Date: 20090910
  Transmission Date: 20100115
  Serious: Yes (Death, Hospitalization)
  Sender: FDA-Public Use
  Company Number: JP-ASTRAZENECA-2009SE07794

PATIENT
  Age: 68 Year
  Sex: Male
  Weight: 88 kg

DRUGS (4)
  1. BLOPRESS [Suspect]
     Indication: HYPERTENSION
     Route: 048
     Dates: start: 20070125, end: 20070903
  2. BLOPRESS [Suspect]
     Route: 048
  3. CALCIUM CHANNEL BLOCKERS [Concomitant]
     Indication: HYPERTENSION
     Route: 065
  4. SULFONAMIDES, UREA DERIVATIVES [Concomitant]
     Indication: DIABETES MELLITUS
     Route: 048

REACTIONS (1)
  - HEPATIC NEOPLASM MALIGNANT [None]
